FAERS Safety Report 22039561 (Version 1)
Quarter: 2023Q1

REPORT INFORMATION
  Report Type: Spontaneous
  Country: FR (occurrence: FR)
  Receive Date: 20230227
  Receipt Date: 20230227
  Transmission Date: 20230418
  Serious: Yes (Hospitalization, Disabling, Other)
  Sender: FDA-Public Use
  Company Number: FR-AFSSAPS-PB20170890

PATIENT
  Age: 36 Year
  Weight: 80 kg

DRUGS (9)
  1. LIDOCAINE [Suspect]
     Active Substance: LIDOCAINE
     Indication: Anaesthesia
     Dosage: 10 DOSAGE FORM, ONCE A DAY (QD)
     Route: 058
     Dates: start: 20170626, end: 20170626
  2. LIDOCAINE [Suspect]
     Active Substance: LIDOCAINE
     Indication: Discogram
     Dosage: 10 DOSAGE FORM, ONCE A DAY (QD)
     Route: 030
     Dates: start: 20170627, end: 20170627
  3. IOPAMIDOL [Suspect]
     Active Substance: IOPAMIDOL
     Indication: Discogram
     Dosage: 10 MILLILITER (10 ML,1X)
     Route: 024
     Dates: start: 20170626, end: 20170626
  4. IOPAMIDOL [Suspect]
     Active Substance: IOPAMIDOL
     Dosage: 10 MILLILITER (10 ML,1X)
     Route: 024
     Dates: start: 20170627, end: 20170627
  5. PREDNISONE [Suspect]
     Active Substance: PREDNISONE
     Indication: Back pain
     Dosage: 1 MILLILITER (1 ML, 1X)
     Route: 024
     Dates: start: 20170626, end: 20170626
  6. PREDNISONE [Suspect]
     Active Substance: PREDNISONE
     Indication: Back pain
     Dosage: 1 MILLILITER (1 ML,1X)
     Route: 024
     Dates: start: 20170627, end: 20170627
  7. PREGABALIN [Concomitant]
     Active Substance: PREGABALIN
     Indication: Product used for unknown indication
     Dosage: 2 DOSAGE FORM, DAILY (2 TABLETS PER DAY FOR A  )
     Route: 065
  8. LIDOCAINE [Concomitant]
     Active Substance: LIDOCAINE
     Indication: Product used for unknown indication
     Dosage: UNK
     Route: 065
  9. LACTULOSE\PARAFFIN [Concomitant]
     Active Substance: LACTULOSE\PARAFFIN
     Indication: Product used for unknown indication
     Dosage: UNK,1 BOX PER MONTH,
     Route: 065

REACTIONS (10)
  - Sensory loss [Not Recovered/Not Resolved]
  - Bladder dysfunction [Not Recovered/Not Resolved]
  - Motor dysfunction [Not Recovered/Not Resolved]
  - Paraplegia [Not Recovered/Not Resolved]
  - Paraplegia [Not Recovered/Not Resolved]
  - Burning sensation [Not Recovered/Not Resolved]
  - Spinal cord ischaemia [Unknown]
  - Pain in extremity [Unknown]
  - Pelvic pain [Unknown]
  - Spinal pain [Unknown]

NARRATIVE: CASE EVENT DATE: 20170627
